FAERS Safety Report 8300202-8 (Version None)
Quarter: 2012Q2

REPORT INFORMATION
  Report Type: 
  Country: None (occurrence: None)
  Receive Date: 20120420
  Receipt Date: 20120411
  Transmission Date: 20120825
  Serious: Yes (Hospitalization)
  Sender: FDA-Public Use
  Company Number: CA-JNJFOC-20120405753

PATIENT
  Sex: Female
  Weight: 85 kg

DRUGS (6)
  1. CALCIUM CARBONATE [Concomitant]
     Route: 065
  2. AZATHIOPRINE [Concomitant]
     Route: 065
  3. VITAMIN D [Concomitant]
     Route: 065
  4. MUTIVITAMINS [Concomitant]
     Route: 065
  5. REMICADE [Suspect]
     Indication: CROHN'S DISEASE
     Route: 042
  6. REMICADE [Suspect]
     Route: 042
     Dates: start: 20120411

REACTIONS (3)
  - INCISION SITE INFECTION [None]
  - INTRACRANIAL HYPOTENSION [None]
  - SMALL INTESTINAL RESECTION [None]
